FAERS Safety Report 7022145-2 (Version None)
Quarter: 2010Q3

REPORT INFORMATION
  Report Type: 
  Country: None (occurrence: None)
  Receive Date: 20100930
  Receipt Date: 20100916
  Transmission Date: 20110219
  Serious: Yes (Hospitalization, Other)
  Sender: FDA-Public Use
  Company Number: PHEH2006US06798

PATIENT
  Sex: Male

DRUGS (6)
  1. AREDIA [Suspect]
     Indication: METASTASES TO BONE
     Dosage: 90 MG, QMO
     Dates: start: 19970724, end: 20020417
  2. ZOMETA [Suspect]
     Indication: METASTASES TO BONE
     Dosage: 4 MG MONTHLY
     Dates: start: 20020625, end: 20030101
  3. ZOMETA [Suspect]
     Dosage: UNK
     Route: 065
     Dates: start: 20020101
  4. CHEMOTHERAPEUTICS,OTHER [Concomitant]
  5. LOPRESSOR [Concomitant]
     Indication: HYPERTENSION
  6. ASPIRIN [Concomitant]
     Dosage: 81 MG, QD
     Route: 048

REACTIONS (62)
  - ABDOMINAL PAIN [None]
  - ABSCESS DRAINAGE [None]
  - ABSCESS MANAGEMENT [None]
  - ALVEOLAR OSTEITIS [None]
  - ASTHENIA [None]
  - BACK PAIN [None]
  - BIOPSY [None]
  - BONE DISORDER [None]
  - BONE FISTULA [None]
  - BONE FRAGMENTATION [None]
  - BONE LESION [None]
  - BONE PAIN [None]
  - CARPAL TUNNEL SYNDROME [None]
  - CHEST PAIN [None]
  - CORONARY ARTERY DISEASE [None]
  - DECREASED INTEREST [None]
  - DEPRESSION [None]
  - DIVERTICULITIS [None]
  - DYSPHONIA [None]
  - EDENTULOUS [None]
  - EMOTIONAL DISTRESS [None]
  - ENDODONTIC PROCEDURE [None]
  - EUSTACHIAN TUBE DYSFUNCTION [None]
  - FATIGUE [None]
  - GINGIVAL ABSCESS [None]
  - GINGIVAL ERYTHEMA [None]
  - GINGIVAL INFECTION [None]
  - GINGIVAL OEDEMA [None]
  - GINGIVAL PAIN [None]
  - HYPERPLASIA [None]
  - HYPOACUSIS [None]
  - HYPOAESTHESIA [None]
  - HYPOGAMMAGLOBULINAEMIA [None]
  - IMPAIRED HEALING [None]
  - INFLAMMATION [None]
  - INTERVERTEBRAL DISC DEGENERATION [None]
  - INTERVERTEBRAL DISC DISORDER [None]
  - LARYNGITIS [None]
  - LUMBAR SPINAL STENOSIS [None]
  - LYMPHADENOPATHY [None]
  - MONOCLONAL IMMUNOGLOBULIN PRESENT [None]
  - MULTIPLE MYELOMA [None]
  - MYOCARDIAL INFARCTION [None]
  - OROPHARYNGEAL PAIN [None]
  - OSTEITIS [None]
  - OSTEOMYELITIS [None]
  - OSTEONECROSIS OF JAW [None]
  - OSTEOPOROSIS [None]
  - PAIN [None]
  - PAIN IN JAW [None]
  - PARAESTHESIA [None]
  - PARANASAL SINUS DISCOMFORT [None]
  - PHYSICAL DISABILITY [None]
  - SENSITIVITY OF TEETH [None]
  - SEQUESTRECTOMY [None]
  - TEMPOROMANDIBULAR JOINT SYNDROME [None]
  - THERAPEUTIC PROCEDURE [None]
  - TOOTH ABSCESS [None]
  - TOOTH EXTRACTION [None]
  - TOOTH INFECTION [None]
  - VISUAL IMPAIRMENT [None]
  - VOCAL CORD DISORDER [None]
